FAERS Safety Report 23272040 (Version 1)
Quarter: 2023Q4

REPORT INFORMATION
  Report Type: Spontaneous
  Country: US (occurrence: US)
  Receive Date: 20231207
  Receipt Date: 20231207
  Transmission Date: 20240109
  Serious: No
  Sender: FDA-Public Use
  Company Number: US-PHARMAESSENTIA CORPORATION-US-2023-PEC-002060

PATIENT
  Sex: Male

DRUGS (1)
  1. BESREMI [Suspect]
     Active Substance: ROPEGINTERFERON ALFA-2B-NJFT
     Indication: Polycythaemia vera
     Dosage: 150 MICROGRAM, Q2W
     Route: 058
     Dates: start: 20230728

REACTIONS (6)
  - Emotional disorder [Unknown]
  - Loss of personal independence in daily activities [Unknown]
  - Anger [Unknown]
  - Insomnia [Unknown]
  - Bone pain [Not Recovered/Not Resolved]
  - Pruritus [Not Recovered/Not Resolved]
